FAERS Safety Report 5239398-3 (Version None)
Quarter: 2007Q1

REPORT INFORMATION
  Report Type: 
  Country: None (occurrence: None)
  Receive Date: 20061208
  Receipt Date: 20060531
  Transmission Date: 20070707
  Serious: Yes (Other)
  Sender: FDA-Public Use
  Company Number: 2006UW10443

PATIENT
  Age: 73 Year
  Weight: 72.5 kg

DRUGS (6)
  1. CRESTOR [Suspect]
     Indication: HYPERCHOLESTEROLAEMIA
     Dosage: 10 MG QD PO
     Route: 048
     Dates: start: 20060501
  2. SYNTHROID [Concomitant]
  3. METFORMIN HCL [Concomitant]
  4. ASPIRIN [Concomitant]
  5. TAMSULOSIN HCL [Concomitant]
  6. PLAVIX [Concomitant]

REACTIONS (1)
  - BLOOD GLUCOSE ABNORMAL [None]
